FAERS Safety Report 10917400 (Version 2)
Quarter: 2019Q2

REPORT INFORMATION
  Report Type: Spontaneous
  Country: US (occurrence: US)
  Receive Date: 20150316
  Receipt Date: 20190417
  Transmission Date: 20190711
  Serious: Yes (Other)
  Sender: FDA-Public Use
  Company Number: US-TEVA-546735USA

PATIENT
  Age: 71 Year
  Sex: Male

DRUGS (4)
  1. LISINOPRIL. [Concomitant]
     Active Substance: LISINOPRIL
  2. PROTONIX [Concomitant]
     Active Substance: PANTOPRAZOLE SODIUM
     Indication: OESOPHAGEAL VARICES HAEMORRHAGE
     Route: 065
  3. OCTREOTIDE. [Suspect]
     Active Substance: OCTREOTIDE
     Indication: OESOPHAGEAL VARICES HAEMORRHAGE
     Dosage: 50?M BOLUS FOLLOWED BY 50 ?M/H CONTINUOUS INFUSION
     Route: 040
  4. OCTREOTIDE. [Suspect]
     Active Substance: OCTREOTIDE
     Dosage: 50 ?M/H CONTINUOUS INFUSION
     Route: 042

REACTIONS (2)
  - Hypothermia [Recovered/Resolved]
  - Sinus bradycardia [Recovered/Resolved]
